FAERS Safety Report 23697210 (Version 2)
Quarter: 2024Q2

REPORT INFORMATION
  Report Type: Report from Study
  Country: FR (occurrence: FR)
  Receive Date: 20240402
  Receipt Date: 20240521
  Transmission Date: 20240716
  Serious: Yes (Hospitalization)
  Sender: FDA-Public Use
  Company Number: FR-INSMED, INC.-2023-05031-FR

PATIENT
  Age: 87 Year
  Sex: Male
  Weight: 51 kg

DRUGS (1)
  1. ARIKAYCE [Suspect]
     Active Substance: AMIKACIN
     Indication: Mycobacterium avium complex infection
     Dosage: 590 MILLIGRAM, QD
     Route: 055
     Dates: start: 20231226

REACTIONS (11)
  - Hospitalisation [Unknown]
  - Dyspnoea [Unknown]
  - Increased viscosity of bronchial secretion [Not Recovered/Not Resolved]
  - Insomnia [Unknown]
  - Sputum discoloured [Not Recovered/Not Resolved]
  - Decreased appetite [Unknown]
  - Dyspnoea exertional [Not Recovered/Not Resolved]
  - Productive cough [Not Recovered/Not Resolved]
  - Fatigue [Not Recovered/Not Resolved]
  - Cough [Unknown]
  - Treatment noncompliance [Unknown]

NARRATIVE: CASE EVENT DATE: 20231226
